FAERS Safety Report 21602352 (Version 1)
Quarter: 2022Q4

REPORT INFORMATION
  Report Type: Spontaneous
  Country: US (occurrence: US)
  Receive Date: 20221116
  Receipt Date: 20221116
  Transmission Date: 20230112
  Serious: No
  Sender: FDA-Public Use
  Company Number: US-PFIZER INC-202201302540

PATIENT
  Age: 63 Year
  Sex: Female
  Weight: 49.887 kg

DRUGS (3)
  1. CORTEF [Suspect]
     Active Substance: HYDROCORTISONE
     Indication: Adrenal insufficiency
     Dosage: 10 MG, DAILY (4-6 TABLETS BY MOUTH DAILY, BNN)
     Route: 048
  2. CORTEF [Suspect]
     Active Substance: HYDROCORTISONE
     Dosage: 30 MG (20/5/5)
  3. CORTEF [Suspect]
     Active Substance: HYDROCORTISONE
     Dosage: 40 MG, DAILY (20 MG QAM/10 MG AT 2-3PM/10 MG AT BEDTIME)
     Route: 048

REACTIONS (3)
  - Labile blood pressure [Unknown]
  - Malaise [Unknown]
  - Weight increased [Unknown]
